FAERS Safety Report 6230152-2 (Version None)
Quarter: 2009Q2

REPORT INFORMATION
  Report Type: 
  Country: None (occurrence: None)
  Receive Date: 20090615
  Receipt Date: 20090605
  Transmission Date: 20091009
  Serious: Yes (Other)
  Sender: FDA-Public Use
  Company Number: PHEH2009US05768

PATIENT
  Sex: Male

DRUGS (2)
  1. TEKTURNA [Suspect]
     Dosage: UNK, UNK
  2. BENICAR HCT [Concomitant]
     Dosage: UNK, UNK

REACTIONS (1)
  - HYPERTENSION [None]
